FAERS Safety Report 5274356-4 (Version None)
Quarter: 2007Q1

REPORT INFORMATION
  Report Type: 
  Country: None (occurrence: None)
  Receive Date: 20070323
  Receipt Date: 20070312
  Transmission Date: 20070707
  Serious: Yes (Death, Other)
  Sender: FDA-Public Use
  Company Number: US-PFIZER INC-2006126324

PATIENT
  Sex: Male

DRUGS (3)
  1. CELEBREX [Suspect]
     Indication: ARTHRITIS
     Dates: start: 19990622, end: 19990720
  2. BEXTRA [Suspect]
  3. VIOXX [Suspect]
     Route: 048
     Dates: start: 19991207, end: 20000519

REACTIONS (1)
  - MYOCARDIAL INFARCTION [None]
